FAERS Safety Report 19303939 (Version 2)
Quarter: 2021Q2

REPORT INFORMATION
  Report Type: Spontaneous
  Country: US (occurrence: US)
  Receive Date: 20210525
  Receipt Date: 20210607
  Transmission Date: 20210717
  Serious: Yes (Life-Threatening, Other)
  Sender: FDA-Public Use
  Company Number: US-BAXTER-2021BAX012452

PATIENT
  Age: 84 Year
  Sex: Male

DRUGS (7)
  1. DIGIBIND [Concomitant]
     Active Substance: OVINE DIGOXIN IMMUNE FAB
     Indication: EVIDENCE BASED TREATMENT
     Route: 065
  2. LIDOCAINE HYDROCHLORIDE AND 5% DEXTROSE INJECTION, USP [Suspect]
     Active Substance: LIDOCAINE HYDROCHLORIDE
     Indication: VENTRICULAR TACHYCARDIA
     Route: 065
  3. DIGOXIN. [Concomitant]
     Active Substance: DIGOXIN
     Indication: ATRIAL FIBRILLATION
  4. LIDOCAINE HYDROCHLORIDE AND 5% DEXTROSE INJECTION, USP [Suspect]
     Active Substance: LIDOCAINE HYDROCHLORIDE
     Indication: ATRIOVENTRICULAR BLOCK COMPLETE
  5. LIDOCAINE HYDROCHLORIDE AND 5% DEXTROSE INJECTION, USP [Suspect]
     Active Substance: LIDOCAINE HYDROCHLORIDE
     Indication: ATRIAL FLUTTER
  6. DIGOXIN. [Concomitant]
     Active Substance: DIGOXIN
     Indication: ATRIOVENTRICULAR BLOCK COMPLETE
     Route: 065
  7. KEYTRUDA [Concomitant]
     Active Substance: PEMBROLIZUMAB
     Indication: LUNG NEOPLASM MALIGNANT
     Route: 065

REACTIONS (1)
  - Drug ineffective [Recovered/Resolved]
